FAERS Safety Report 9626269 (Version 1)
Quarter: 2013Q4

REPORT INFORMATION
  Report Type: Report from Study
  Country: US (occurrence: US)
  Receive Date: 20131016
  Receipt Date: 20131016
  Transmission Date: 20140711
  Serious: Yes (Other)
  Sender: FDA-Public Use
  Company Number: US-JNJFOC-20131007007

PATIENT
  Age: 22 Month
  Sex: Male

DRUGS (1)
  1. NUCYNTA ER [Suspect]
     Indication: ACCIDENTAL EXPOSURE TO PRODUCT
     Route: 048

REACTIONS (2)
  - Accidental exposure to product by child [Unknown]
  - Hypotension [Unknown]
